FAERS Safety Report 20204451 (Version 1)
Quarter: 2021Q4

REPORT INFORMATION
  Report Type: Spontaneous
  Country: FR (occurrence: FR)
  Receive Date: 20211220
  Receipt Date: 20211220
  Transmission Date: 20220303
  Serious: Yes (Hospitalization)
  Sender: FDA-Public Use
  Company Number: None

PATIENT
  Age: 59 Year
  Sex: Female
  Weight: 73 kg

DRUGS (10)
  1. DIAZEPAM [Suspect]
     Active Substance: DIAZEPAM
     Dosage: 10 MG, THERAPY START DATE: ASKU
     Route: 048
     Dates: end: 20211016
  2. VALPROATE SODIUM [Interacting]
     Active Substance: VALPROATE SODIUM
     Dosage: 1500 MG, THERAPY START AND END DATE: ASKU
     Route: 048
  3. ATIVAN [Interacting]
     Active Substance: LORAZEPAM
     Indication: Catatonia
     Dosage: 12 MG
     Route: 030
     Dates: start: 20211017, end: 20211018
  4. LORMETAZEPAM [Suspect]
     Active Substance: LORMETAZEPAM
     Dosage: 1 MG, THERAPY START DATE: ASKU
     Route: 048
     Dates: end: 20211016
  5. TRIMEPRAZINE [Concomitant]
     Active Substance: TRIMEPRAZINE
     Dosage: 20 MG, THERAPY START DATE: ASKU: THERALENE 4 PERCENT, ORAL SOLUTION IN DROPS
     Route: 048
     Dates: end: 20211016
  6. ANETHOLTRITHION [Concomitant]
     Active Substance: ANETHOLTRITHION
     Dosage: 37.5 MG, THERAPY START AND END DATE: ASKU
     Route: 048
  7. QUETIAPINE [Concomitant]
     Active Substance: QUETIAPINE
     Dosage: 800 MG, THERAPY START DATE: ASKU
     Route: 048
     Dates: end: 20211016
  8. LOXAPINE [Concomitant]
     Active Substance: LOXAPINE
     Dosage: 50 MG, THERAPY START DATE: ASKU, LOXAPINE BASE
     Route: 048
     Dates: end: 20211016
  9. TERALITHE [Concomitant]
     Active Substance: LITHIUM CARBONATE
     Dosage: 750 MG, TERALITHE 250 MG, SCORED TABLET
     Route: 048
     Dates: start: 202108, end: 20211016
  10. AMLODIPINE [Concomitant]
     Active Substance: AMLODIPINE BESYLATE
     Dosage: 5 MG, THERAPY START AND END DATE: ASKU
     Route: 048

REACTIONS (2)
  - Altered state of consciousness [Recovered/Resolved]
  - Drug interaction [Unknown]

NARRATIVE: CASE EVENT DATE: 20211018
